FAERS Safety Report 4551674-6 (Version None)
Quarter: 2005Q1

REPORT INFORMATION
  Report Type: 
  Country: None (occurrence: None)
  Receive Date: 20050112
  Receipt Date: 20050104
  Transmission Date: 20050727
  Serious: Yes (Other)
  Sender: FDA-Public Use
  Company Number: 2217-28

PATIENT
  Sex: Male

DRUGS (1)
  1. AZMACORT [Suspect]
     Indication: CHRONIC OBSTRUCTIVE PULMONARY DISEASE
     Dosage: 600 MCG BID, PUFFS

REACTIONS (2)
  - HIP FRACTURE [None]
  - SPINAL FRACTURE [None]
